FAERS Safety Report 16976546 (Version 2)
Quarter: 2019Q4

REPORT INFORMATION
  Report Type: Spontaneous
  Country: US (occurrence: US)
  Receive Date: 20191030
  Receipt Date: 20191107
  Transmission Date: 20200122
  Serious: No
  Sender: FDA-Public Use
  Company Number: US-TEVA-2019-US-1130468

PATIENT
  Sex: Female

DRUGS (2)
  1. MIRTAZAPINE. [Suspect]
     Active Substance: MIRTAZAPINE
     Indication: DEPRESSION
     Route: 065
     Dates: start: 2014
  2. ALPRAZOLAM EXTENDED RELEASE TABLETS [Suspect]
     Active Substance: ALPRAZOLAM
     Indication: ANXIETY
     Dosage: EXTENDED RELEASE TABLETS
     Route: 065

REACTIONS (4)
  - Anxiety [Unknown]
  - Agitation [Unknown]
  - Product substitution issue [Unknown]
  - Nausea [Unknown]

NARRATIVE: CASE EVENT DATE: 20190825
